FAERS Safety Report 4925069-7 (Version None)
Quarter: 2006Q1

REPORT INFORMATION
  Report Type: 
  Country: None (occurrence: None)
  Receive Date: 20060222
  Receipt Date: 20060213
  Transmission Date: 20060701
  Serious: Yes (Hospitalization, Disabling, Other)
  Sender: FDA-Public Use
  Company Number: 2004034560

PATIENT
  Age: 33 Year
  Sex: Female
  Weight: 68.0396 kg

DRUGS (3)
  1. RELPAX [Suspect]
     Indication: MIGRAINE WITHOUT AURA
     Dosage: 40 MG (40 MG ONCE) ORAL
     Route: 048
     Dates: start: 20040505, end: 20040505
  2. VITAMINS (VITAMINS) [Concomitant]
  3. MOTRIN [Concomitant]

REACTIONS (18)
  - APHASIA [None]
  - ASPARTATE AMINOTRANSFERASE DECREASED [None]
  - ASTHENIA [None]
  - BLINDNESS UNILATERAL [None]
  - BLOOD GLUCOSE INCREASED [None]
  - BLOOD PHOSPHORUS DECREASED [None]
  - BLOOD POTASSIUM DECREASED [None]
  - FALL [None]
  - HEMIPARESIS [None]
  - LOSS OF CONSCIOUSNESS [None]
  - MIGRAINE WITH AURA [None]
  - PARAESTHESIA [None]
  - PROTHROMBIN TIME PROLONGED [None]
  - SOMNOLENCE [None]
  - SPEECH DISORDER [None]
  - SYNCOPE [None]
  - VASOSPASM [None]
  - VISION BLURRED [None]
